FAERS Safety Report 25990787 (Version 1)
Quarter: 2025Q4

REPORT INFORMATION
  Report Type: Spontaneous
  Country: EU (occurrence: EU)
  Receive Date: 20251103
  Receipt Date: 20251103
  Transmission Date: 20260118
  Serious: Yes (Death, Other)
  Sender: AMGEN
  Company Number: EU-AMGEN-ITASP2025214802

PATIENT

DRUGS (1)
  1. XGEVA [Suspect]
     Active Substance: DENOSUMAB
     Indication: Metastases to bone
     Dosage: UNK [EVERY 3-4 WEEKS (Q3-4 WEEKS)]
     Route: 065

REACTIONS (11)
  - Death [Fatal]
  - Osteonecrosis of jaw [Unknown]
  - Breast cancer metastatic [Unknown]
  - Metastases to bone [Unknown]
  - Palliative care [Unknown]
  - Disease progression [Unknown]
  - Hypercalcaemia [Unknown]
  - Off label use [Unknown]
  - Refusal of treatment by patient [Unknown]
  - Bone disorder [Unknown]
  - Bone pain [Unknown]
